FAERS Safety Report 7176853-3 (Version None)
Quarter: 2010Q4

REPORT INFORMATION
  Report Type: 
  Country: None (occurrence: None)
  Receive Date: 20101216
  Receipt Date: 20101216
  Transmission Date: 20110411
  Serious: Yes (Disabling)
  Sender: FDA-Public Use
  Company Number: None

PATIENT
  Age: 30 Year
  Sex: Female

DRUGS (1)
  1. ADVIL [Suspect]

REACTIONS (3)
  - DRUG LABEL CONFUSION [None]
  - MEDICATION ERROR [None]
  - PRODUCT LABEL ISSUE [None]
